FAERS Safety Report 5549893-5 (Version None)
Quarter: 2007Q4

REPORT INFORMATION
  Report Type: 
  Country: None (occurrence: None)
  Receive Date: 20071212
  Receipt Date: 20071211
  Transmission Date: 20080405
  Serious: Yes (Death, Other)
  Sender: FDA-Public Use
  Company Number: US-BRISTOL-MYERS SQUIBB COMPANY-14007694

PATIENT

DRUGS (1)
  1. DIDANOSINE [Suspect]
     Indication: HIV INFECTION

REACTIONS (5)
  - CONVULSION [None]
  - DISEASE PROGRESSION [None]
  - NEUROPATHY PERIPHERAL [None]
  - PANCREATITIS [None]
  - RETINOPATHY [None]
